FAERS Safety Report 9409205 (Version 1)
Quarter: 2013Q2

REPORT INFORMATION
  Report Type: Spontaneous
  Country: SK (occurrence: SK)
  Receive Date: 20130424
  Receipt Date: 20130424
  Transmission Date: 20140414
  Serious: Yes (Other)
  Sender: FDA-Public Use
  Company Number: 1304SVK004909

PATIENT
  Sex: Female

DRUGS (1)
  1. CEDAX (CEFTIBUTEN) CAPSULE [Suspect]
     Indication: BRONCHITIS VIRAL
     Dosage: 2 DOSES WERE ADMINISTERED.
     Route: 048
     Dates: start: 20120123, end: 20120124

REACTIONS (1)
  - Headache [None]
